FAERS Safety Report 6274618-8 (Version None)
Quarter: 2009Q3

REPORT INFORMATION
  Report Type: 
  Country: None (occurrence: None)
  Receive Date: 20090717
  Receipt Date: 20090701
  Transmission Date: 20100115
  Serious: Yes (Death, Hospitalization)
  Sender: FDA-Public Use
  Company Number: IMP_04479_2009

PATIENT
  Age: 36 Year
  Sex: Male

DRUGS (6)
  1. BUPROPION HCL [Suspect]
     Indication: DRUG USE FOR UNKNOWN INDICATION
     Dosage: (EIGHTEEN 300MG TABLETS IN STOMACH AND PROXIMAL SMALL BOWEL)
  2. METOPROLOL SUCCINATE [Concomitant]
  3. IBUPROFEN [Concomitant]
  4. LAMOTRIGINE [Concomitant]
  5. VALPROIC ACID [Concomitant]
  6. DIPHENHYDRAMINE HCL [Concomitant]

REACTIONS (12)
  - AGITATION [None]
  - APNOEIC ATTACK [None]
  - CARDIOTOXICITY [None]
  - CONVULSION [None]
  - DRUG TOXICITY [None]
  - ELECTROCARDIOGRAM QRS COMPLEX PROLONGED [None]
  - ELECTROCARDIOGRAM QT PROLONGED [None]
  - HALLUCINATION [None]
  - OVERDOSE [None]
  - SINUS TACHYCARDIA [None]
  - TREMOR [None]
  - VOMITING [None]
